FAERS Safety Report 7223335 (Version 2)
Quarter: 2020Q3

REPORT INFORMATION
  Report Type: Report from Study
  Country: KR (occurrence: KR)
  Receive Date: 20091218
  Receipt Date: 20100114
  Transmission Date: 20201104
  Serious: Yes (Hospitalization)
  Sender: FDA-Public Use
  Company Number: KR-JNJFOC-20091203049

PATIENT
  Age: 14 Year
  Sex: Female
  Weight: 51.3 kg

DRUGS (3)
  1. PALIPERIDONE. [Suspect]
     Active Substance: PALIPERIDONE
     Indication: SCHIZOPHRENIA
     Route: 048
     Dates: start: 20090915, end: 20091112
  2. PALIPERIDONE. [Suspect]
     Active Substance: PALIPERIDONE
     Route: 048
     Dates: start: 20090915, end: 20091112
  3. PALIPERIDONE. [Suspect]
     Active Substance: PALIPERIDONE
     Route: 048
     Dates: start: 20090915, end: 20091112

REACTIONS (1)
  - Suicide attempt [Recovered/Resolved]

NARRATIVE: CASE EVENT DATE: 20091204
